FAERS Safety Report 7590632-4 (Version None)
Quarter: 2011Q3

REPORT INFORMATION
  Report Type: 
  Country: None (occurrence: None)
  Receive Date: 20110705
  Receipt Date: 20110628
  Transmission Date: 20111222
  Serious: Yes (Hospitalization)
  Sender: FDA-Public Use
  Company Number: CHPA2011NO03561

PATIENT
  Sex: Female

DRUGS (2)
  1. OTRIVIN [Suspect]
     Dosage: 1-3 TIMES DAILY
     Route: 045
     Dates: start: 20110227
  2. SODIUM CHLORIDE [Suspect]
     Dosage: UNK, UNK
     Route: 065

REACTIONS (5)
  - HYPERTENSION [None]
  - PRE-ECLAMPSIA [None]
  - PREMATURE LABOUR [None]
  - HAEMORRHAGE [None]
  - MATERNAL EXPOSURE DURING PREGNANCY [None]
